FAERS Safety Report 7248276-X (Version None)
Quarter: 2011Q1

REPORT INFORMATION
  Report Type: 
  Country: None (occurrence: None)
  Receive Date: 20110127
  Receipt Date: 20110118
  Transmission Date: 20110831
  Serious: No
  Sender: FDA-Public Use
  Company Number: US-BAYER-2011-006454

PATIENT
  Age: 27 Year
  Sex: Female

DRUGS (1)
  1. NATAZIA [Suspect]
     Indication: CONTRACEPTION
     Dosage: UNK
     Route: 048
     Dates: start: 20100823, end: 20101123

REACTIONS (2)
  - PREGNANCY ON ORAL CONTRACEPTIVE [None]
  - MENSTRUATION DELAYED [None]
